FAERS Safety Report 26208186 (Version 1)
Quarter: 2025Q4

REPORT INFORMATION
  Report Type: Spontaneous
  Country: CN (occurrence: CN)
  Receive Date: 20251229
  Receipt Date: 20251229
  Transmission Date: 20260118
  Serious: Yes (Hospitalization)
  Sender: BAYER HEALTHCARE PHARMACEUTICALS INC.
  Company Number: CN-BAYER-2025A168518

PATIENT
  Age: 61 Year
  Sex: Male

DRUGS (1)
  1. ULTRAVIST [Suspect]
     Active Substance: IOPROMIDE
     Indication: Computerised tomogram
     Dosage: 70 ML, ONCE
     Route: 041
     Dates: start: 20250313, end: 20250313

REACTIONS (3)
  - Sensation of foreign body [Recovering/Resolving]
  - Blood corticotrophin abnormal [None]
  - Cortisol decreased [None]

NARRATIVE: CASE EVENT DATE: 20250313
